FAERS Safety Report 24683621 (Version 1)
Quarter: 2024Q4

REPORT INFORMATION
  Report Type: Spontaneous
  Country: US (occurrence: US)
  Receive Date: 20241202
  Receipt Date: 20241202
  Transmission Date: 20250115
  Serious: No
  Sender: CIPLA
  Company Number: US-CIPLA LTD.-2024US07393

PATIENT

DRUGS (3)
  1. GABAPENTIN [Suspect]
     Active Substance: GABAPENTIN
     Indication: Fibromyalgia
     Dosage: 300 MG, UNK
     Route: 065
  2. GABAPENTIN [Suspect]
     Active Substance: GABAPENTIN
     Indication: Seizure
  3. GABAPENTIN [Suspect]
     Active Substance: GABAPENTIN
     Indication: Epilepsy

REACTIONS (3)
  - Off label use [Unknown]
  - Eyelid function disorder [Not Recovered/Not Resolved]
  - Fatigue [Not Recovered/Not Resolved]
